FAERS Safety Report 21068509 (Version 1)
Quarter: 2022Q3

REPORT INFORMATION
  Report Type: Spontaneous
  Country: US (occurrence: US)
  Receive Date: 20220712
  Receipt Date: 20220712
  Transmission Date: 20221027
  Serious: Yes (Disabling)
  Sender: FDA-Public Use
  Company Number: US-BAYER-2022A095476

PATIENT
  Age: 83 Year
  Sex: Female

DRUGS (1)
  1. CIPROFLOXACIN [Suspect]
     Active Substance: CIPROFLOXACIN
     Indication: Urinary tract infection
     Dosage: UNK
     Route: 048

REACTIONS (9)
  - Gait inability [None]
  - Peripheral swelling [None]
  - Limb mass [None]
  - Malaise [None]
  - Pain [None]
  - Gait disturbance [None]
  - Hypoaesthesia [None]
  - Cardiac disorder [None]
  - Bedridden [None]
